FAERS Safety Report 5967704-0 (Version None)
Quarter: 2008Q4

REPORT INFORMATION
  Report Type: 
  Country: None (occurrence: None)
  Receive Date: 20081126
  Receipt Date: 20081120
  Transmission Date: 20090506
  Serious: Yes (Other)
  Sender: FDA-Public Use
  Company Number: US-RANBAXY-2008US-19458

PATIENT

DRUGS (1)
  1. CLINDAMYCIN HYDROCHLORIDE [Suspect]
     Indication: KNEE ARTHROPLASTY
     Dosage: 150 MG, UNK
     Route: 048

REACTIONS (7)
  - ABDOMINAL PAIN [None]
  - ABDOMINAL PAIN UPPER [None]
  - ARTHRITIS [None]
  - DIARRHOEA [None]
  - IMMUNE SYSTEM DISORDER [None]
  - NAUSEA [None]
  - URINARY TRACT INFECTION [None]
